FAERS Safety Report 24571799 (Version 1)
Quarter: 2024Q4

REPORT INFORMATION
  Report Type: Spontaneous
  Country: FR (occurrence: FR)
  Receive Date: 20241101
  Receipt Date: 20241101
  Transmission Date: 20250115
  Serious: Yes (Other)
  Sender: MERCK
  Company Number: FR-009507513-2410FRA012306

PATIENT
  Sex: Female

DRUGS (6)
  1. PEMBROLIZUMAB [Suspect]
     Active Substance: PEMBROLIZUMAB
     Indication: Triple negative breast cancer
     Dosage: UNK, EVERY 21 DAYS
     Dates: start: 20240913
  2. PEMBROLIZUMAB [Suspect]
     Active Substance: PEMBROLIZUMAB
     Indication: Triple negative breast cancer
  3. PEMBROLIZUMAB [Suspect]
     Active Substance: PEMBROLIZUMAB
     Indication: Metastases to stomach
  4. TAXOL [Suspect]
     Active Substance: PACLITAXEL
     Indication: Triple negative breast cancer
     Dosage: 60 MILLIGRAM/SQ. METER, QW
     Dates: start: 20240913
  5. TAXOL [Suspect]
     Active Substance: PACLITAXEL
     Indication: Triple negative breast cancer
  6. TAXOL [Suspect]
     Active Substance: PACLITAXEL
     Indication: Metastases to stomach

REACTIONS (7)
  - Malignant neoplasm progression [Unknown]
  - Haematemesis [Unknown]
  - Red blood cell transfusion [Unknown]
  - Transfusion [Unknown]
  - Hypotension [Unknown]
  - Therapeutic embolisation [Unknown]
  - Therapy non-responder [Unknown]

NARRATIVE: CASE EVENT DATE: 20240101
